FAERS Safety Report 8984379 (Version 1)
Quarter: 2012Q4

REPORT INFORMATION
  Report Type: Spontaneous
  Country: CA (occurrence: None)
  Receive Date: 20121217
  Receipt Date: 20121217
  Transmission Date: 20130627
  Serious: Yes (Death)
  Sender: FDA-Public Use
  Company Number: US-2012-11763

PATIENT

DRUGS (13)
  1. BUSULFEX [Suspect]
     Dosage: 12 mg/kg,  UNK,  Unknown
  2. CARBOPLATIN (CARBOPLATIN) [Suspect]
     Dosage: , Intravenous
     Route: 042
  3. CISPLATIN [Suspect]
     Dosage: , Unknown
  4. CYCLOPHOSPHAMIDE [Suspect]
     Dosage: 2000 mg/m2,  qd,  Intravenous
     Route: 042
  5. DOXORUBICIN [Suspect]
  6. ETOPOSIDE [Suspect]
     Dosage: , Unknown
  7. FLUDARA (FLUDARABINE PHOSPHATE) [Suspect]
     Dosage: , Intravenous
     Route: 042
  8. GRANULOCYTE COLONY STIMULATING FACTOR [Suspect]
     Dosage: , Unknown
  9. IFOSFAMIDE [Suspect]
     Dosage: 250 mg/m2,  UNK,  Intravenous
     Route: 042
  10. PREDNISONE (PREDNISONE) [Suspect]
     Dosage: , Unknown
  11. RITUXAN [Suspect]
     Dosage: , Intravesical
     Route: 043
  12. VINCRISTINE SULFATE [Suspect]
     Dosage: , Unknown
  13. ZEVALIN [Suspect]
     Dosage: , Unknown

REACTIONS (2)
  - Meningitis tuberculous [None]
  - Progressive multifocal leukoencephalopathy [None]
